FAERS Safety Report 23620163 (Version 1)
Quarter: 2024Q1

REPORT INFORMATION
  Report Type: Spontaneous
  Country: US (occurrence: US)
  Receive Date: 20240312
  Receipt Date: 20240312
  Transmission Date: 20240410
  Serious: No
  Sender: FDA-Public Use
  Company Number: US-TEVA-VS-3163514

PATIENT
  Age: 54 Year

DRUGS (1)
  1. AUSTEDO [Suspect]
     Active Substance: DEUTETRABENAZINE
     Indication: Tardive dyskinesia
     Dosage: TAKE ONE TABLET BY MOUTH TWICE DAILY
     Route: 048
     Dates: start: 20230511

REACTIONS (1)
  - Drug ineffective [Unknown]
